FAERS Safety Report 7556918-4 (Version None)
Quarter: 2011Q2

REPORT INFORMATION
  Report Type: 
  Country: None (occurrence: None)
  Receive Date: 20110616
  Receipt Date: 20110616
  Transmission Date: 20111010
  Serious: Yes (Life-Threatening, Disabling)
  Sender: FDA-Public Use
  Company Number: None

PATIENT
  Age: 20 Year
  Sex: Male
  Weight: 80 kg

DRUGS (8)
  1. BENADRYL [Concomitant]
  2. BLEOMYCIN SULFATE [Concomitant]
  3. ZOFRAN [Concomitant]
  4. FOSAPREPITANT 150MG [Suspect]
     Indication: PROPHYLAXIS OF NAUSEA AND VOMITING
     Dosage: 1MG/ML OVER 20 MIN IV DRIP
     Route: 041
     Dates: start: 20110524, end: 20110524
  5. DECADRON [Concomitant]
  6. VINBLASTINE SULFATE [Concomitant]
  7. DACARBAZINE [Concomitant]
  8. ADRIAMYCIN PFS [Concomitant]

REACTIONS (2)
  - INFUSION RELATED REACTION [None]
  - DRUG HYPERSENSITIVITY [None]
